FAERS Safety Report 7644681-8 (Version None)
Quarter: 2011Q3

REPORT INFORMATION
  Report Type: 
  Country: None (occurrence: None)
  Receive Date: 20110729
  Receipt Date: 20110701
  Transmission Date: 20111222
  Serious: Yes (Hospitalization)
  Sender: FDA-Public Use
  Company Number: BR-US-EMD SERONO, INC.-7070075

PATIENT
  Sex: Female

DRUGS (2)
  1. CARBOLITIUM [Concomitant]
  2. REBIF [Suspect]
     Indication: RELAPSING-REMITTING MULTIPLE SCLEROSIS
     Dates: start: 20091201, end: 20100301

REACTIONS (5)
  - MULTIPLE SCLEROSIS RELAPSE [None]
  - DEPRESSION [None]
  - PAIN [None]
  - ANAEMIA [None]
  - BIPOLAR DISORDER [None]
